FAERS Safety Report 5066301-1 (Version None)
Quarter: 2006Q3

REPORT INFORMATION
  Report Type: 
  Country: None (occurrence: None)
  Receive Date: 20060801
  Receipt Date: 20060703
  Transmission Date: 20061208
  Serious: Yes (Other)
  Sender: FDA-Public Use
  Company Number: PHMT2006CA01463

PATIENT
  Age: 79 Year
  Sex: Male

DRUGS (5)
  1. COMTAN [Suspect]
     Indication: PARKINSON'S DISEASE
     Dosage: 100 MG, QID
     Route: 048
     Dates: start: 20060623, end: 20060627
  2. SINEMET CR [Concomitant]
     Dosage: 100/25 MG QHS
  3. LEVODOPA [Concomitant]
     Dosage: 100 MG, TID
  4. ZYPREXA [Concomitant]
     Dates: start: 20051001
  5. WELLBUTRIN [Concomitant]
     Dates: start: 20051001

REACTIONS (1)
  - DELUSION [None]
